FAERS Safety Report 24621892 (Version 1)
Quarter: 2024Q4

REPORT INFORMATION
  Report Type: Spontaneous
  Country: US (occurrence: US)
  Receive Date: 20241114
  Receipt Date: 20241114
  Transmission Date: 20250115
  Serious: No
  Sender: SANOFI AVENTIS
  Company Number: US-SANOFI-02291761

PATIENT
  Age: 42 Year
  Sex: Female

DRUGS (2)
  1. LANTUS [Suspect]
     Active Substance: INSULIN GLARGINE
     Indication: Gestational diabetes
     Dosage: 32 IU, QD
  2. LANTUS [Suspect]
     Active Substance: INSULIN GLARGINE
     Indication: Diabetes mellitus

REACTIONS (4)
  - Maternal exposure during pregnancy [Unknown]
  - Product dispensing issue [Unknown]
  - Accidental exposure to product [Unknown]
  - Exposure via skin contact [Unknown]
